FAERS Safety Report 8278009-X (Version None)
Quarter: 2012Q2

REPORT INFORMATION
  Report Type: 
  Country: None (occurrence: None)
  Receive Date: 20120412
  Receipt Date: 20120406
  Transmission Date: 20120825
  Serious: Yes (Hospitalization)
  Sender: FDA-Public Use
  Company Number: IT-COVIDIEN/TYCO HEALTHCARE/MALLINCKRODT-T201201414

PATIENT
  Sex: Male

DRUGS (1)
  1. OPTIRAY 160 [Suspect]
     Indication: COMPUTERISED TOMOGRAM ABDOMEN
     Dosage: 120 ML, SINGLE
     Route: 042
     Dates: start: 20120405, end: 20120405

REACTIONS (2)
  - CIRCULATORY COLLAPSE [None]
  - HYPERSENSITIVITY [None]
